FAERS Safety Report 10940402 (Version 2)
Quarter: 2015Q2

REPORT INFORMATION
  Report Type: Spontaneous
  Country: US (occurrence: US)
  Receive Date: 20150322
  Receipt Date: 20150524
  Transmission Date: 20150821
  Serious: No
  Sender: FDA-Public Use
  Company Number: US-JNJFOC-20130417249

PATIENT
  Age: 75 Year
  Sex: Male

DRUGS (4)
  1. REOPRO [Suspect]
     Active Substance: ABCIXIMAB
     Indication: ACUTE CORONARY SYNDROME
     Dosage: INFUSION
     Route: 042
     Dates: start: 20130425, end: 20130425
  2. REOPRO [Suspect]
     Active Substance: ABCIXIMAB
     Indication: ACUTE CORONARY SYNDROME
     Dosage: BOLUS, 18.2 MG
     Route: 042
     Dates: start: 20130425, end: 20130425
  3. REOPRO [Suspect]
     Active Substance: ABCIXIMAB
     Indication: CHRONIC KIDNEY DISEASE
     Dosage: BOLUS, 18.2 MG
     Route: 042
     Dates: start: 20130425, end: 20130425
  4. REOPRO [Suspect]
     Active Substance: ABCIXIMAB
     Indication: CHRONIC KIDNEY DISEASE
     Dosage: INFUSION
     Route: 042
     Dates: start: 20130425, end: 20130425

REACTIONS (1)
  - Infusion site extravasation [Unknown]

NARRATIVE: CASE EVENT DATE: 20130425
